FAERS Safety Report 9294532 (Version 1)
Quarter: 2013Q2

REPORT INFORMATION
  Report Type: Spontaneous
  Country: US (occurrence: None)
  Receive Date: 20130516
  Receipt Date: 20130516
  Transmission Date: 20140414
  Serious: Yes (Life-Threatening, Other)
  Sender: FDA-Public Use
  Company Number: None

PATIENT
  Age: 37 Year
  Sex: Female
  Weight: 66.23 kg

DRUGS (1)
  1. SIMPONI [Suspect]
     Indication: RHEUMATOID ARTHRITIS
     Dosage: 0.5 ML?Q28 DAYS?
     Route: 058
     Dates: start: 20121230, end: 20130127

REACTIONS (6)
  - Rash [None]
  - Pruritus [None]
  - Urticaria [None]
  - Dyspnoea [None]
  - Chest discomfort [None]
  - Dyspnoea [None]
